FAERS Safety Report 8501314-6 (Version None)
Quarter: 2012Q3

REPORT INFORMATION
  Report Type: 
  Country: None (occurrence: None)
  Receive Date: 20120710
  Receipt Date: 20120703
  Transmission Date: 20120928
  Serious: No
  Sender: FDA-Public Use
  Company Number: US-PFIZER INC-2011316061

PATIENT
  Sex: Male
  Weight: 53.515 kg

DRUGS (6)
  1. CHANTIX [Suspect]
     Dosage: 1 MG, 2X/DAY
     Route: 048
     Dates: end: 20110101
  2. VITAMIN D [Concomitant]
     Dosage: UNK
  3. CHANTIX [Suspect]
     Indication: SMOKING CESSATION THERAPY
     Dosage: 0.5 MG, 1X/DAY
     Route: 048
     Dates: start: 20110101
  4. PLAVIX [Concomitant]
     Dosage: UNK
  5. CHANTIX [Suspect]
     Dosage: 1 MG, 1X/DAY
     Route: 048
     Dates: start: 20110101, end: 20110101
  6. CRESTOR [Concomitant]
     Dosage: UNK

REACTIONS (5)
  - DRUG INTOLERANCE [None]
  - DISORIENTATION [None]
  - SLEEP DISORDER [None]
  - IMPAIRED WORK ABILITY [None]
  - DISTURBANCE IN ATTENTION [None]
